FAERS Safety Report 17185077 (Version 1)
Quarter: 2019Q4

REPORT INFORMATION
  Report Type: Spontaneous
  Country: SE (occurrence: SE)
  Receive Date: 20191220
  Receipt Date: 20191220
  Transmission Date: 20200122
  Serious: Yes (Hospitalization)
  Sender: FDA-Public Use
  Company Number: SE-ELI_LILLY_AND_COMPANY-SE201912007808

PATIENT
  Age: 33 Year
  Sex: Female

DRUGS (4)
  1. PROPAVAN [Suspect]
     Active Substance: PROPIOMAZINE
     Indication: PRODUCT USED FOR UNKNOWN INDICATION
     Dosage: 20 ST A 25 MG
     Route: 048
     Dates: start: 20190809, end: 20190809
  2. IMOVANE [Suspect]
     Active Substance: ZOPICLONE
     Indication: PRODUCT USED FOR UNKNOWN INDICATION
     Dosage: 10 ST A 7,5 MG
     Route: 065
     Dates: start: 20190809, end: 20190809
  3. LAMICTAL [Suspect]
     Active Substance: LAMOTRIGINE
     Indication: PRODUCT USED FOR UNKNOWN INDICATION
     Dosage: 12 ST A1 00 MG
     Route: 065
     Dates: start: 20190809, end: 20190809
  4. DULOXETINE HYDROCHLORIDE. [Suspect]
     Active Substance: DULOXETINE HYDROCHLORIDE
     Indication: PRODUCT USED FOR UNKNOWN INDICATION
     Dosage: 8 ST A 60 MG
     Route: 065
     Dates: start: 20190809, end: 20190809

REACTIONS (6)
  - Hypoxia [Unknown]
  - Cyanosis [Unknown]
  - Intentional self-injury [Unknown]
  - Intentional overdose [Unknown]
  - Loss of consciousness [Unknown]
  - Mydriasis [Unknown]

NARRATIVE: CASE EVENT DATE: 20190809
